FAERS Safety Report 21567658 (Version 1)
Quarter: 2022Q4

REPORT INFORMATION
  Report Type: Spontaneous
  Country: US (occurrence: US)
  Receive Date: 20221108
  Receipt Date: 20221108
  Transmission Date: 20230113
  Serious: Yes (Death)
  Sender: FDA-Public Use
  Company Number: US-OPKO PHARMACEUTICALS, LLC.-2022OPK00070

PATIENT
  Age: 90 Year
  Sex: Male
  Weight: 117.64 kg

DRUGS (10)
  1. RAYALDEE [Suspect]
     Active Substance: CALCIFEDIOL
     Dosage: 30 MICROGRAM, QD
     Route: 048
     Dates: start: 20200827, end: 20221021
  2. GLIPIZIDE [Concomitant]
     Active Substance: GLIPIZIDE
     Dosage: 10 MILLIGRAM, BID
     Route: 048
     Dates: end: 20221021
  3. SIMVASTATIN [Concomitant]
     Active Substance: SIMVASTATIN
     Dosage: 40 MILLIGRAM, QD
     Route: 048
     Dates: end: 20221021
  4. FERROUS SULFATE [Concomitant]
     Active Substance: FERROUS SULFATE
     Dosage: 65 MILLIGRAM, TID
     Route: 048
     Dates: end: 20221021
  5. LAXAT [Concomitant]
     Dosage: UNK, QD
     Dates: end: 20221021
  6. LANTUS [Concomitant]
     Active Substance: INSULIN GLARGINE
     Dosage: 25 INTERNATIONAL UNIT PER MILLILITRE, QD
     Route: 058
     Dates: end: 20221021
  7. OLMESARTAN [Concomitant]
     Active Substance: OLMESARTAN
     Dosage: 40 MILLIGRAM, QD
     Route: 048
     Dates: end: 20221021
  8. ALLOPURINOL [Concomitant]
     Active Substance: ALLOPURINOL
     Dosage: 100 UNK, QD
     Route: 048
  9. FUROSEMIDE [Concomitant]
     Active Substance: FUROSEMIDE
     Dosage: 40 MILLIGRAM, QD
     Route: 048
     Dates: end: 20221021
  10. SODIUM BICARBONATE [Concomitant]
     Active Substance: SODIUM BICARBONATE
     Dosage: 650 MILLIGRAM, TID
     Route: 048
     Dates: end: 20221021

REACTIONS (1)
  - Death [None]

NARRATIVE: CASE EVENT DATE: 20221021
